FAERS Safety Report 6506139-9 (Version None)
Quarter: 2009Q4

REPORT INFORMATION
  Report Type: 
  Country: None (occurrence: None)
  Receive Date: 20091217
  Receipt Date: 20091217
  Transmission Date: 20100525
  Serious: No
  Sender: FDA-Public Use
  Company Number: None

PATIENT
  Age: 50 Year
  Sex: Male
  Weight: 102.0593 kg

DRUGS (4)
  1. COLD REMEDY NASAL GEL [Suspect]
     Dosage: ON/OFF FOR 2 YEARS
  2. SEASONAL ALLERGY RELIEF NASAL GEL [Suspect]
     Dosage: ON/OFF FOR 2 YEARS
  3. EXTREME CONGESTION NASAL GEL [Suspect]
     Dosage: ON/OFF FOR 2 YEARS
  4. ASPIRIN [Concomitant]

REACTIONS (1)
  - ANOSMIA [None]
